FAERS Safety Report 20001761 (Version 1)
Quarter: 2021Q4

REPORT INFORMATION
  Report Type: Spontaneous
  Country: CN (occurrence: CN)
  Receive Date: 20211027
  Receipt Date: 20211027
  Transmission Date: 20220303
  Serious: Yes (Other)
  Sender: FDA-Public Use
  Company Number: CN-SA-SAC20211026000963

PATIENT
  Age: 39 Year
  Sex: Male
  Weight: 72 kg

DRUGS (5)
  1. OXALIPLATIN [Suspect]
     Active Substance: OXALIPLATIN
     Indication: Neoplasm
     Dosage: 230 MG, QD
     Route: 041
     Dates: start: 20210730, end: 20210730
  2. GEMCITABINE HYDROCHLORIDE [Suspect]
     Active Substance: GEMCITABINE HYDROCHLORIDE
     Indication: Neoplasm
     Dosage: 1.8 G, QD
     Route: 041
     Dates: start: 20210730, end: 20210807
  3. SINTILIMAB [Suspect]
     Active Substance: SINTILIMAB
     Indication: Neoplasm
     Dosage: 0.2 G, QD
     Route: 041
     Dates: start: 20210730, end: 20210730
  4. SODIUM CHLORIDE [Concomitant]
     Active Substance: SODIUM CHLORIDE
     Indication: Vehicle solution use
     Dosage: 100 ML, QD
     Route: 041
     Dates: start: 20210730, end: 20210730
  5. DEXTROSE [Concomitant]
     Active Substance: DEXTROSE
     Indication: Vehicle solution use
     Dosage: 250 ML, QD
     Route: 041

REACTIONS (1)
  - Myelosuppression [Recovering/Resolving]

NARRATIVE: CASE EVENT DATE: 20210809
